FAERS Safety Report 12697491 (Version 1)
Quarter: 2016Q3

REPORT INFORMATION
  Report Type: Spontaneous
  Country: US (occurrence: None)
  Receive Date: 20160829
  Receipt Date: 20160829
  Transmission Date: 20161109
  Serious: No
  Sender: FDA-Public Use
  Company Number: None

PATIENT
  Age: 69 Year
  Sex: Female
  Weight: 102.06 kg

DRUGS (13)
  1. PRAMIPEXOLE. [Concomitant]
     Active Substance: PRAMIPEXOLE
  2. LORATADINE. [Concomitant]
     Active Substance: LORATADINE
  3. TIZANIDINE GENERIC FOR TIZANIDIN, 4 MG [Suspect]
     Active Substance: TIZANIDINE
     Indication: NERVE COMPRESSION
     Route: 048
     Dates: start: 20160819, end: 20160826
  4. TIZANIDINE GENERIC FOR TIZANIDIN, 4 MG [Suspect]
     Active Substance: TIZANIDINE
     Indication: SPINAL OPERATION
     Route: 048
     Dates: start: 20160819, end: 20160826
  5. METFORMIN [Concomitant]
     Active Substance: METFORMIN HYDROCHLORIDE
  6. PRAVASTATIN. [Concomitant]
     Active Substance: PRAVASTATIN
  7. GABAPENTANT [Concomitant]
  8. INVOKANA [Concomitant]
     Active Substance: CANAGLIFLOZIN
  9. LEVOTHYROXINE. [Concomitant]
     Active Substance: LEVOTHYROXINE
  10. GLIMEPIRIDE. [Concomitant]
     Active Substance: GLIMEPIRIDE
  11. ONE A DAY WOMAN VIT [Concomitant]
  12. ASPIRIN. [Concomitant]
     Active Substance: ASPIRIN
  13. LISINOPRIL. [Concomitant]
     Active Substance: LISINOPRIL

REACTIONS (3)
  - Tinnitus [None]
  - Balance disorder [None]
  - Deafness [None]

NARRATIVE: CASE EVENT DATE: 20160826
